FAERS Safety Report 18607952 (Version 2)
Quarter: 2021Q3

REPORT INFORMATION
  Report Type: Spontaneous
  Country: US (occurrence: US)
  Receive Date: 20201212
  Receipt Date: 20210827
  Transmission Date: 20211014
  Serious: Yes (Hospitalization, Other)
  Sender: FDA-Public Use
  Company Number: US-LEADINGPHARMA-US-2020LEALIT00176

PATIENT
  Age: 26 Year
  Sex: Male

DRUGS (10)
  1. LEVETIRACETAM. [Interacting]
     Active Substance: LEVETIRACETAM
     Indication: SEIZURE
     Route: 042
  2. VENLAFAXINE [Concomitant]
     Active Substance: VENLAFAXINE HYDROCHLORIDE
     Indication: SCHIZOAFFECTIVE DISORDER
     Route: 065
  3. VALPROATE [Interacting]
     Active Substance: VALPROIC ACID
     Indication: PARTIAL SEIZURES
     Route: 065
  4. LORAZEPAM TABLETS USP [Suspect]
     Active Substance: LORAZEPAM
     Indication: CATATONIA
     Route: 065
  5. LACOSAMIDE. [Interacting]
     Active Substance: LACOSAMIDE
     Indication: CATATONIA
     Route: 042
  6. LEVETIRACETAM. [Interacting]
     Active Substance: LEVETIRACETAM
     Route: 042
  7. LACOSAMIDE. [Interacting]
     Active Substance: LACOSAMIDE
     Indication: SEIZURE
     Route: 042
  8. OLANZAPINE. [Concomitant]
     Active Substance: OLANZAPINE
     Indication: SCHIZOAFFECTIVE DISORDER
     Route: 065
  9. TRAZODONE [Concomitant]
     Active Substance: TRAZODONE HYDROCHLORIDE
     Indication: SCHIZOAFFECTIVE DISORDER
     Route: 065
  10. PROPOFOL. [Interacting]
     Active Substance: PROPOFOL
     Indication: SEIZURE
     Dosage: 5 MICROGRAM/KG/MIN
     Route: 042

REACTIONS (6)
  - Generalised tonic-clonic seizure [Recovered/Resolved]
  - Withdrawal catatonia [Recovered/Resolved]
  - Delirium [Recovered/Resolved]
  - Status epilepticus [Recovered/Resolved]
  - Product use in unapproved indication [None]
  - Partial seizures [Recovered/Resolved]
